FAERS Safety Report 6736869-5 (Version None)
Quarter: 2010Q2

REPORT INFORMATION
  Report Type: 
  Country: None (occurrence: None)
  Receive Date: 20100521
  Receipt Date: 20100510
  Transmission Date: 20101027
  Serious: Yes (Hospitalization, Other)
  Sender: FDA-Public Use
  Company Number: PHHY2010CN30405

PATIENT
  Age: 5 Year
  Sex: Male

DRUGS (12)
  1. CYCLOSPORINE [Suspect]
     Indication: APLASTIC ANAEMIA
     Dosage: UNK
     Dates: start: 20071001
  2. CYCLOSPORINE [Suspect]
     Dosage: UNK
  3. BASILIXIMAB [Concomitant]
     Indication: STEM CELL TRANSPLANT
     Dosage: 20 MG, ONCE/SINGLE
  4. BASILIXIMAB [Concomitant]
     Dosage: 20 MG, ONCE/SINGLE
  5. ATG-FRESENIUS [Concomitant]
     Indication: PROPHYLAXIS AGAINST GRAFT VERSUS HOST DISEASE
     Dosage: UNK
     Dates: start: 20071001
  6. GRANULOCYTE COLONY STIMULATING FACTOR [Concomitant]
     Dosage: UNK
     Dates: start: 20071001
  7. METHOTREXATE [Concomitant]
     Indication: PROPHYLAXIS AGAINST GRAFT VERSUS HOST DISEASE
     Dosage: UNK
  8. MYCOPHENOLATE MOFETIL [Concomitant]
     Indication: PROPHYLAXIS AGAINST GRAFT VERSUS HOST DISEASE
     Dosage: UNK
  9. BUSULFEX [Concomitant]
     Dosage: 4 MG/KG/DAY
  10. FLUDARABINE [Concomitant]
     Dosage: 30 MG/M^2/DAY
  11. CYCLOPHOSPHAMIDE [Concomitant]
     Dosage: 50 MG/KG/DAY
  12. ANTI-THYMOCYTE GLOBULIN NOS [Concomitant]
     Dosage: 5 MG/KG/DAY

REACTIONS (14)
  - ACUTE GRAFT VERSUS HOST DISEASE IN SKIN [None]
  - APLASTIC ANAEMIA [None]
  - BLOOD PRODUCT TRANSFUSION DEPENDENT [None]
  - CHOLESTASIS [None]
  - CHRONIC GRAFT VERSUS HOST DISEASE [None]
  - DRUG INEFFECTIVE [None]
  - FEBRILE NEUTROPENIA [None]
  - LIVER ABSCESS [None]
  - PYREXIA [None]
  - RASH [None]
  - STEM CELL TRANSPLANT [None]
  - TRANSAMINASES INCREASED [None]
  - VOMITING [None]
  - WHITE BLOOD CELL COUNT DECREASED [None]
